FAERS Safety Report 23458635 (Version 2)
Quarter: 2024Q1

REPORT INFORMATION
  Report Type: Spontaneous
  Country: ES (occurrence: None)
  Receive Date: 20240130
  Receipt Date: 20240131
  Transmission Date: 20240410
  Serious: Yes (Other)
  Sender: FDA-Public Use
  Company Number: ES-Unichem Pharmaceuticals (USA) Inc-UCM202401-000059

PATIENT
  Age: 9 Year
  Sex: Female

DRUGS (3)
  1. DIVALPROEX SODIUM [Suspect]
     Active Substance: DIVALPROEX SODIUM
     Indication: Epilepsy
     Dosage: 32 MG/KG/DAY
  2. LAMOTRIGINE [Concomitant]
     Active Substance: LAMOTRIGINE
     Indication: Epilepsy
     Dosage: UNKNOWN
  3. CLOBAZAM [Concomitant]
     Active Substance: CLOBAZAM
     Indication: Epilepsy
     Dosage: UNKNOWN

REACTIONS (4)
  - Eyelid ptosis [Recovered/Resolved]
  - Epilepsy [Recovered/Resolved]
  - Cerebral atrophy [Recovered/Resolved]
  - Hypersomnia [Recovered/Resolved]
